FAERS Safety Report 7211661-6 (Version None)
Quarter: 2011Q1

REPORT INFORMATION
  Report Type: 
  Country: None (occurrence: None)
  Receive Date: 20110105
  Receipt Date: 20101229
  Transmission Date: 20110831
  Serious: Yes (Hospitalization, Other)
  Sender: FDA-Public Use
  Company Number: DE-BAXTER-2010BH030569

PATIENT
  Age: 79 Year
  Sex: Female
  Weight: 75 kg

DRUGS (6)
  1. METRONIDAZOLE [Suspect]
     Indication: PROPHYLAXIS
     Route: 042
     Dates: start: 20101213, end: 20101213
  2. METRONIDAZOLE [Suspect]
     Indication: CHOLECYSTITIS
     Route: 042
     Dates: start: 20101213, end: 20101213
  3. METRONIDAZOLE [Suspect]
     Route: 042
     Dates: start: 20101216, end: 20101216
  4. CIPROFLOXACIN [Suspect]
     Indication: CHOLECYSTITIS
     Route: 042
     Dates: start: 20101213, end: 20101213
  5. CIPROFLOXACIN [Suspect]
     Indication: PROPHYLAXIS
     Route: 042
     Dates: start: 20101213, end: 20101213
  6. METRONIDAZOLE [Suspect]
     Route: 042
     Dates: start: 20101216, end: 20101216

REACTIONS (5)
  - ARRHYTHMIA [None]
  - DERMATITIS ALLERGIC [None]
  - CARDIAC ARREST [None]
  - TACHYCARDIA [None]
  - TACHYCARDIA PAROXYSMAL [None]
